FAERS Safety Report 13370517 (Version 2)
Quarter: 2017Q2

REPORT INFORMATION
  Report Type: Spontaneous
  Country: CA (occurrence: CA)
  Receive Date: 20170324
  Receipt Date: 20170503
  Transmission Date: 20170830
  Serious: Yes (Disabling, Other)
  Sender: FDA-Public Use
  Company Number: CA-BAYER-2017-019820

PATIENT
  Age: 23 Year
  Sex: Male
  Weight: 73.92 kg

DRUGS (3)
  1. AVELOX [Suspect]
     Active Substance: MOXIFLOXACIN HYDROCHLORIDE
     Indication: BRONCHITIS VIRAL
  2. AVELOX [Suspect]
     Active Substance: MOXIFLOXACIN HYDROCHLORIDE
     Indication: BRONCHITIS BACTERIAL
     Dosage: 400 MG, QD
     Route: 048
     Dates: start: 20170102, end: 20170105
  3. SYMBICORT [Concomitant]
     Active Substance: BUDESONIDE\FORMOTEROL FUMARATE DIHYDRATE
     Dosage: UNK

REACTIONS (22)
  - Musculoskeletal pain [Recovering/Resolving]
  - Disturbance in attention [Recovering/Resolving]
  - Anxiety [Recovering/Resolving]
  - Negative thoughts [Recovering/Resolving]
  - Viraemia [None]
  - Depression [None]
  - Asthenia [Recovering/Resolving]
  - Amnesia [Recovering/Resolving]
  - Insomnia [Recovering/Resolving]
  - Abnormal loss of weight [None]
  - Fatigue [Recovering/Resolving]
  - Impaired work ability [Recovering/Resolving]
  - Feeling abnormal [None]
  - Tremor [Recovering/Resolving]
  - Myalgia [Not Recovered/Not Resolved]
  - Neck pain [Recovering/Resolving]
  - Feeling abnormal [None]
  - Vision blurred [None]
  - Gait disturbance [None]
  - Tendon disorder [Recovered/Resolved]
  - Head discomfort [Recovering/Resolving]
  - Panic attack [None]

NARRATIVE: CASE EVENT DATE: 201701
